FAERS Safety Report 8216350-7 (Version None)
Quarter: 2012Q1

REPORT INFORMATION
  Report Type: 
  Country: None (occurrence: None)
  Receive Date: 20120316
  Receipt Date: 20120312
  Transmission Date: 20120608
  Serious: Yes (Hospitalization)
  Sender: FDA-Public Use
  Company Number: PHHY2012FR005682

PATIENT
  Sex: Female
  Weight: 56 kg

DRUGS (4)
  1. CALCIUM W/VITAMIN D NOS [Concomitant]
     Dosage: 1000 MG,DAILY
  2. DICLOFENAC SODIUM [Concomitant]
     Dosage: 1 DF
  3. ZOLEDRONOC ACID [Suspect]
     Indication: OSTEOPOROTIC FRACTURE
     Dosage: UNK UKN, UNK
     Route: 042
     Dates: start: 20110501
  4. VITAMIN D [Concomitant]
     Dosage: UNK UKN, UNK

REACTIONS (5)
  - MEMORY IMPAIRMENT [None]
  - FALL [None]
  - CEREBRAL ATROPHY [None]
  - AMNESIA [None]
  - CONFUSIONAL STATE [None]
